FAERS Safety Report 9820198 (Version 1)
Quarter: 2014Q1

REPORT INFORMATION
  Report Type: Report from Study
  Country: GB (occurrence: GB)
  Receive Date: 20140116
  Receipt Date: 20140116
  Transmission Date: 20141002
  Serious: Yes (Other)
  Sender: FDA-Public Use
  Company Number: GB-BAYER-2014-007620

PATIENT
  Age: 58 Year
  Sex: Female

DRUGS (1)
  1. SORAFENIB (RAF KINASE INHIBITOR) [Suspect]
     Indication: SALIVARY GLAND CANCER
     Dosage: 400 MG, BID STARTING DOSE
     Route: 048

REACTIONS (1)
  - Performance status decreased [None]
